FAERS Safety Report 14156424 (Version 3)
Quarter: 2017Q4

REPORT INFORMATION
  Report Type: Spontaneous
  Country: US (occurrence: US)
  Receive Date: 20171103
  Receipt Date: 20171205
  Transmission Date: 20180321
  Serious: No
  Sender: FDA-Public Use
  Company Number: US-PFIZER INC-2017475172

PATIENT
  Age: 81 Year
  Sex: Female

DRUGS (30)
  1. ARAVA [Suspect]
     Active Substance: LEFLUNOMIDE
     Dosage: UNK
  2. BROMOCRIPTINE MESYLATE [Suspect]
     Active Substance: BROMOCRIPTINE MESYLATE
     Dosage: UNK
  3. DRIXORAL [Suspect]
     Active Substance: DEXBROMPHENIRAMINE MALEATE\PSEUDOEPHEDRINE SULFATE
     Dosage: UNK
  4. ELAVIL [Suspect]
     Active Substance: AMITRIPTYLINE HYDROCHLORIDE
     Dosage: UNK
  5. NUBAIN [Suspect]
     Active Substance: NALBUPHINE HYDROCHLORIDE
     Dosage: UNK
  6. DIPHENHYDRAMINE HCL [Suspect]
     Active Substance: DIPHENHYDRAMINE HYDROCHLORIDE
     Dosage: UNK
  7. KEFLEX [Suspect]
     Active Substance: CEPHALEXIN
     Dosage: UNK
  8. NEGGRAM [Suspect]
     Active Substance: NALIDIXIC ACID
     Dosage: UNK
  9. PARLODEL [Suspect]
     Active Substance: BROMOCRIPTINE MESYLATE
     Dosage: UNK
  10. PENICILLAMINE [Suspect]
     Active Substance: PENICILLAMINE
     Dosage: UNK
  11. MEPERIDINE HCL [Suspect]
     Active Substance: MEPERIDINE HYDROCHLORIDE
     Dosage: UNK
  12. LIBRAX [Suspect]
     Active Substance: CHLORDIAZEPOXIDE HYDROCHLORIDE\CLIDINIUM BROMIDE
     Dosage: UNK
  13. NIACIN. [Suspect]
     Active Substance: NIACIN
     Dosage: UNK
  14. LIDOCAINE HCL [Suspect]
     Active Substance: LIDOCAINE HYDROCHLORIDE
     Dosage: UNK
  15. DEMEROL [Suspect]
     Active Substance: MEPERIDINE HYDROCHLORIDE
     Dosage: UNK
  16. CRESTOR [Suspect]
     Active Substance: ROSUVASTATIN CALCIUM
     Dosage: UNK
  17. FURADANTIN [Suspect]
     Active Substance: NITROFURANTOIN
     Dosage: UNK
  18. CLIDINIUM BROMIDE [Suspect]
     Active Substance: CLIDINIUM BROMIDE
     Dosage: UNK
  19. CYCLOSPORINE. [Suspect]
     Active Substance: CYCLOSPORINE
     Dosage: UNK
  20. FLEXERIL [Suspect]
     Active Substance: CYCLOBENZAPRINE HYDROCHLORIDE
     Dosage: UNK
  21. PRAVASTATIN. [Suspect]
     Active Substance: PRAVASTATIN
     Dosage: UNK
  22. ENBREL [Suspect]
     Active Substance: ETANERCEPT
     Dosage: UNK
  23. LIPITOR [Suspect]
     Active Substance: ATORVASTATIN CALCIUM
     Dosage: UNK
  24. CEPHALEXIN. [Suspect]
     Active Substance: CEPHALEXIN
     Dosage: UNK
  25. CODEINE SULFATE PHOSPHATE [Suspect]
     Active Substance: CODEINE PHOSPHATE
     Dosage: UNK
  26. PARAFON FORTE DSC [Suspect]
     Active Substance: CHLORZOXAZONE
     Dosage: UNK
  27. IODINE. [Suspect]
     Active Substance: IODINE
     Dosage: UNK
  28. CIPROFLOXACIN. [Suspect]
     Active Substance: CIPROFLOXACIN
     Dosage: UNK
  29. CLINDAMYCIN HCL [Suspect]
     Active Substance: CLINDAMYCIN HYDROCHLORIDE
     Dosage: UNK
  30. LIBRIUM [Suspect]
     Active Substance: CHLORDIAZEPOXIDE HYDROCHLORIDE
     Dosage: UNK

REACTIONS (1)
  - Drug hypersensitivity [Unknown]
